FAERS Safety Report 5868479-6 (Version None)
Quarter: 2008Q3

REPORT INFORMATION
  Report Type: 
  Country: None (occurrence: None)
  Receive Date: 20080902
  Receipt Date: 20080902
  Transmission Date: 20090109
  Serious: Yes (Hospitalization)
  Sender: FDA-Public Use
  Company Number: None

PATIENT
  Age: 76 Year
  Sex: Male
  Weight: 76.2043 kg

DRUGS (1)
  1. IBUPROFEN TABLETS [Suspect]
     Indication: PLEURAL EFFUSION
     Dosage: 600 MG 3 X A DAY- PO
     Route: 048
     Dates: start: 20080822, end: 20080827

REACTIONS (5)
  - BLISTER [None]
  - DIZZINESS [None]
  - DYSPNOEA [None]
  - FAECES DISCOLOURED [None]
  - HAEMORRHAGE [None]
